FAERS Safety Report 4757185-7 (Version None)
Quarter: 2005Q3

REPORT INFORMATION
  Report Type: 
  Country: None (occurrence: None)
  Receive Date: 20050829
  Receipt Date: 20050816
  Transmission Date: 20060218
  Serious: Yes (Hospitalization)
  Sender: FDA-Public Use
  Company Number: 2005116603

PATIENT
  Age: 6 Year
  Sex: Male

DRUGS (4)
  1. DIFLUCAN [Suspect]
     Indication: ILL-DEFINED DISORDER
     Dosage: 100 MG,
  2. PANTOPRAZOLE SODIUM [Suspect]
     Indication: ILL-DEFINED DISORDER
     Dosage: 40 MG (20 MG, 2 IN 1 D)
  3. AMPHO-MORONAL (AMPHOTERICIN B) [Suspect]
     Indication: ILL-DEFINED DISORDER
     Dosage: 6 ML (2 ML, 3 IN 1 D),
  4. MAGNESIUM VERLA N DRAGEES (MAGNESIUM CITRATE, MAGNESIUM GLUTAMATE) [Suspect]
     Indication: ILL-DEFINED DISORDER
     Dosage: 13, 2MVAL (2 IN 1 D), ORAL
     Route: 048

REACTIONS (2)
  - CATHETER RELATED COMPLICATION [None]
  - VENA CAVA THROMBOSIS [None]
